FAERS Safety Report 12547801 (Version 2)
Quarter: 2016Q3

REPORT INFORMATION
  Report Type: Spontaneous
  Country: ES (occurrence: ES)
  Receive Date: 20160712
  Receipt Date: 20160802
  Transmission Date: 20161109
  Serious: Yes (Hospitalization, Other)
  Sender: FDA-Public Use
  Company Number: ES-NOVEN PHARMACEUTICALS, INC.-ES2016001834

PATIENT

DRUGS (1)
  1. PAROXETINE. [Suspect]
     Active Substance: PAROXETINE
     Indication: MAJOR DEPRESSION
     Dosage: 20 MG, QD
     Route: 065

REACTIONS (6)
  - Insomnia [Unknown]
  - Self esteem inflated [Unknown]
  - Hypomania [Unknown]
  - Sexually inappropriate behaviour [Unknown]
  - Irritability [Unknown]
  - Systemic lupus erythematosus [Unknown]
